FAERS Safety Report 9170971 (Version 1)
Quarter: 2013Q1

REPORT INFORMATION
  Report Type: Spontaneous
  Country: US (occurrence: None)
  Receive Date: 20130315
  Receipt Date: 20130315
  Transmission Date: 20140127
  Serious: Yes (Hospitalization)
  Sender: FDA-Public Use
  Company Number: None

PATIENT
  Sex: Female
  Weight: 70 kg

DRUGS (1)
  1. OFATUMUMAB [Suspect]
     Dates: end: 20130312

REACTIONS (3)
  - Hyperglycaemia [None]
  - Asthenia [None]
  - Hyperkalaemia [None]
